FAERS Safety Report 8151398-2 (Version None)
Quarter: 2012Q1

REPORT INFORMATION
  Report Type: 
  Country: None (occurrence: None)
  Receive Date: 20120220
  Receipt Date: 20120208
  Transmission Date: 20120608
  Serious: Yes (Death, Hospitalization)
  Sender: FDA-Public Use
  Company Number: US-ROCHE-1033192

PATIENT
  Sex: Female
  Weight: 50.394 kg

DRUGS (4)
  1. NORVASC [Concomitant]
     Indication: HYPERTENSION
     Route: 048
     Dates: start: 20090717
  2. MEGACE [Concomitant]
     Indication: INCREASED APPETITE
     Route: 048
     Dates: start: 20090801
  3. AVASTIN [Suspect]
     Indication: BILE DUCT CANCER
     Dosage: EVERY DAY 1 AND 21 DAYSCYCLE
     Route: 042
     Dates: start: 20090814, end: 20090814
  4. GEMZAR [Suspect]
     Indication: BILE DUCT CANCER
     Dosage: DAY1, DAY8 EVERY THREE WEEKS
     Route: 042
     Dates: start: 20090402, end: 20090814

REACTIONS (4)
  - FATIGUE [None]
  - DECREASED APPETITE [None]
  - BLOOD BILIRUBIN INCREASED [None]
  - DISEASE PROGRESSION [None]
